FAERS Safety Report 8805985 (Version 1)
Quarter: 2012Q4

REPORT INFORMATION
  Report Type: Spontaneous
  Country: US (occurrence: None)
  Receive Date: 20120919
  Receipt Date: 20120919
  Transmission Date: 20130627
  Serious: Yes (Other)
  Sender: FDA-Public Use
  Company Number: None

PATIENT
  Age: 54 Year
  Sex: Female
  Weight: 66.68 kg

DRUGS (23)
  1. AVASTIN [Suspect]
     Indication: BREAST CANCER STAGE IV
     Route: 041
     Dates: start: 20120709, end: 20120910
  2. SENNA [Concomitant]
  3. DOCUSATE [Concomitant]
  4. HYDROCODONE-APAP [Concomitant]
  5. GABAPENTIN [Concomitant]
  6. LORAZEPAM [Concomitant]
  7. CRANBERRY [Concomitant]
  8. LOPERAMIDE-HCL [Concomitant]
  9. MICRO-K [Concomitant]
  10. MAGIC MOUTHWASH [Concomitant]
  11. PROCHLORPERAZINE [Concomitant]
  12. TRASTUZUMAB [Concomitant]
  13. DOCETAXEL [Concomitant]
  14. EMLA CREAM [Concomitant]
  15. LIPITOR [Concomitant]
  16. PRIOLSEC [Concomitant]
  17. GLUCOSAMINE-CHONDROITIN [Concomitant]
  18. CINNAMON [Concomitant]
  19. VIT D3 [Concomitant]
  20. LEVSIN [Concomitant]
  21. PSEUDOEPHEDRIN-IBUPROFEN [Concomitant]
  22. NAPROXEN-SODIUM [Concomitant]
  23. DEXAMETHASONE [Concomitant]

REACTIONS (1)
  - Haemorrhoids [None]
